FAERS Safety Report 4276696-4 (Version None)
Quarter: 2004Q1

REPORT INFORMATION
  Report Type: 
  Country: None (occurrence: None)
  Receive Date: 20040120
  Receipt Date: 20040107
  Transmission Date: 20041129
  Serious: Yes (Other)
  Sender: FDA-Public Use
  Company Number: FR-SHR-04-019566

PATIENT
  Age: 78 Year
  Sex: Male

DRUGS (2)
  1. ULTRAVIST 370 [Suspect]
     Indication: ARTERIOGRAM
     Dosage: INTRA-ARTERIAL
     Route: 013
  2. ATARAX /INO/ (ALPRAZOLAM) [Concomitant]

REACTIONS (5)
  - ANAPHYLACTOID REACTION [None]
  - BRONCHOSPASM [None]
  - GENERALISED ERYTHEMA [None]
  - SHOCK [None]
  - TACHYCARDIA [None]
